FAERS Safety Report 24697002 (Version 1)
Quarter: 2024Q4

REPORT INFORMATION
  Report Type: Spontaneous
  Country: CH (occurrence: CH)
  Receive Date: 20241204
  Receipt Date: 20241204
  Transmission Date: 20250114
  Serious: Yes (Life-Threatening, Hospitalization, Other)
  Sender: BAYER HEALTHCARE PHARMACEUTICALS INC.
  Company Number: CH-BAYER-2024A161231

PATIENT
  Age: 47 Year
  Sex: Male
  Weight: 92 kg

DRUGS (2)
  1. ULTRAVIST [Suspect]
     Active Substance: IOPROMIDE
     Indication: Computerised tomogram
     Dosage: 10 ML, ONCE
     Dates: start: 20241107, end: 20241107
  2. ISOSORBIDE DINITRATE [Suspect]
     Active Substance: ISOSORBIDE DINITRATE
     Indication: Computerised tomogram
     Dosage: UNK

REACTIONS (6)
  - Circulatory collapse [Recovering/Resolving]
  - Loss of consciousness [Recovered/Resolved]
  - Bradyarrhythmia [Recovered/Resolved]
  - Vomiting [Recovered/Resolved]
  - Hyperhidrosis [Recovered/Resolved]
  - Pallor [Recovered/Resolved]

NARRATIVE: CASE EVENT DATE: 20241107
